FAERS Safety Report 10206501 (Version 2)
Quarter: 2014Q2

REPORT INFORMATION
  Report Type: Spontaneous
  Country: US (occurrence: US)
  Receive Date: 20140530
  Receipt Date: 20140530
  Transmission Date: 20141212
  Serious: No
  Sender: FDA-Public Use
  Company Number: US-GLAXOSMITHKLINE-A0667391A

PATIENT
  Age: 56 Year
  Sex: Female
  Weight: 66 kg

DRUGS (6)
  1. FLOLAN [Suspect]
     Indication: PULMONARY HYPERTENSION
     Dosage: 30.42NGKM CONTINUOUS
     Route: 042
     Dates: start: 200701, end: 20131125
  2. OXYCONTIN [Concomitant]
     Dosage: 20MG TWICE PER DAY
     Route: 048
  3. OXYCODONE [Concomitant]
     Route: 048
  4. COUMADIN [Concomitant]
     Route: 048
  5. LASIX [Concomitant]
     Route: 048
  6. REVATIO [Concomitant]

REACTIONS (5)
  - Rash pruritic [Unknown]
  - Application site hypersensitivity [Unknown]
  - Flushing [Unknown]
  - Pain in jaw [Unknown]
  - Rash [Unknown]
